FAERS Safety Report 5372238-0 (Version None)
Quarter: 2007Q2

REPORT INFORMATION
  Report Type: 
  Country: None (occurrence: None)
  Receive Date: 20070627
  Receipt Date: 20070621
  Transmission Date: 20071010
  Serious: Yes (Life-Threatening)
  Sender: FDA-Public Use
  Company Number: JP-ASTRAZENECA-2007AP02953

PATIENT
  Age: 29248 Day
  Sex: Female

DRUGS (3)
  1. CRESTOR [Suspect]
     Indication: HYPERCHOLESTEROLAEMIA
     Route: 048
     Dates: start: 20070428, end: 20070507
  2. SELBEX [Concomitant]
     Indication: GASTRITIS
     Route: 048
     Dates: end: 20070507
  3. CERCINE [Concomitant]
     Indication: INSOMNIA
     Route: 048
     Dates: end: 20070507

REACTIONS (2)
  - MYOPATHY [None]
  - PNEUMONIA ASPIRATION [None]
